FAERS Safety Report 4600285-2 (Version None)
Quarter: 2005Q1

REPORT INFORMATION
  Report Type: 
  Country: None (occurrence: None)
  Receive Date: 20050303
  Receipt Date: 20050217
  Transmission Date: 20050727
  Serious: Yes (Hospitalization)
  Sender: FDA-Public Use
  Company Number: 2005-FF-00110FF

PATIENT
  Age: 59 Year
  Sex: Male

DRUGS (3)
  1. VIRAMUNE [Suspect]
     Indication: HIV INFECTION
     Dosage: MG (MG, 1 IN 12 HR) PO
     Route: 048
  2. VIDEX [Concomitant]
  3. VIREAD (TENOFOVIR DISOPROXIL FUMARATE) (UNK) [Concomitant]

REACTIONS (6)
  - CHEST PAIN [None]
  - CORONARY ARTERY STENOSIS [None]
  - ELECTROCARDIOGRAM ABNORMAL [None]
  - MEDICAL DEVICE COMPLICATION [None]
  - MYOCARDIAL INFARCTION [None]
  - NECROSIS [None]
